FAERS Safety Report 7463722-4 (Version None)
Quarter: 2011Q2

REPORT INFORMATION
  Report Type: 
  Country: None (occurrence: None)
  Receive Date: 20110506
  Receipt Date: 20110426
  Transmission Date: 20111010
  Serious: Yes (Other)
  Sender: FDA-Public Use
  Company Number: TH-EISAI INC-E7389-01006-CLI-TH

PATIENT
  Sex: Male
  Weight: 50 kg

DRUGS (8)
  1. NIFEDIPINE [Concomitant]
     Dates: start: 20100303
  2. TRAMADOL [Concomitant]
     Dates: start: 20091126
  3. CODEPECT [Concomitant]
     Dates: start: 20100126
  4. EPIRUBICIN HYDROCHLORIDE [Suspect]
     Indication: NON-SMALL CELL LUNG CANCER
     Dates: start: 20100921
  5. FOLIC ACID [Concomitant]
     Dates: start: 20091126
  6. ERLOTINIB [Concomitant]
     Indication: NON-SMALL CELL LUNG CANCER
     Route: 048
     Dates: start: 20100922
  7. FERROUS FUMARATE [Concomitant]
     Dates: start: 20100525
  8. LOPERAMIDE [Concomitant]
     Dates: start: 20100921

REACTIONS (2)
  - WHITE BLOOD CELL COUNT DECREASED [None]
  - NEUTROPHIL COUNT DECREASED [None]
